FAERS Safety Report 5257026-8 (Version None)
Quarter: 2007Q1

REPORT INFORMATION
  Report Type: 
  Country: None (occurrence: None)
  Receive Date: 20070307
  Receipt Date: 20070228
  Transmission Date: 20070707
  Serious: Yes (Hospitalization)
  Sender: FDA-Public Use
  Company Number: 2007SE00617

PATIENT
  Age: 26083 Day
  Sex: Female
  Weight: 62 kg

DRUGS (7)
  1. BLOPRESS TABLETS 8 [Suspect]
     Indication: HYPERTENSION
     Route: 048
     Dates: start: 20060809, end: 20060924
  2. LASIX [Suspect]
     Route: 048
     Dates: start: 20041215, end: 20060808
  3. LASIX [Suspect]
     Route: 048
     Dates: start: 20060809
  4. MERCAZOLE [Suspect]
     Route: 048
     Dates: start: 20041215
  5. ASPARA K [Suspect]
     Route: 048
     Dates: start: 20041215
  6. LIPITOR [Suspect]
     Route: 048
     Dates: start: 20041215
  7. SELBEX [Suspect]
     Route: 048
     Dates: start: 20041215

REACTIONS (1)
  - CHOLANGITIS SUPPURATIVE [None]
